FAERS Safety Report 7416899-0 (Version None)
Quarter: 2011Q2

REPORT INFORMATION
  Report Type: 
  Country: None (occurrence: None)
  Receive Date: 20110415
  Receipt Date: 20110405
  Transmission Date: 20111010
  Serious: Yes (Other)
  Sender: FDA-Public Use
  Company Number: US-JNJFOC-20110403131

PATIENT
  Sex: Female
  Weight: 90.72 kg

DRUGS (3)
  1. VALIUM [Concomitant]
     Indication: MUSCLE SPASMS
     Route: 048
  2. MSIR [Concomitant]
     Indication: PAIN
     Route: 048
  3. DURAGESIC [Suspect]
     Indication: PAIN
     Route: 062

REACTIONS (2)
  - INCORRECT DRUG ADMINISTRATION DURATION [None]
  - MUSCULOSKELETAL PAIN [None]
